FAERS Safety Report 15861587 (Version 2)
Quarter: 2019Q2

REPORT INFORMATION
  Report Type: Spontaneous
  Country: DE (occurrence: DE)
  Receive Date: 20190124
  Receipt Date: 20190406
  Transmission Date: 20190711
  Serious: Yes (Life-Threatening, Hospitalization, Congenital Anomaly, Other)
  Sender: FDA-Public Use
  Company Number: DE-ACCORD-103287

PATIENT
  Age: 93 Year
  Sex: Female

DRUGS (10)
  1. ANASTROZOLE. [Concomitant]
     Active Substance: ANASTROZOLE
     Indication: PRODUCT USED FOR UNKNOWN INDICATION
     Dosage: 1 MG, UNK
     Route: 065
  2. DOXEPIN [Interacting]
     Active Substance: DOXEPIN
     Indication: ANXIETY
     Dosage: 25 MG ONCE AND 10 MG TWICE A DAY,ALSO RECEIVED 45 MG
     Route: 065
  3. ASPIRIN. [Concomitant]
     Active Substance: ASPIRIN
     Indication: PRODUCT USED FOR UNKNOWN INDICATION
     Dosage: 100 MG, UNK
     Route: 065
  4. RISPERIDONE. [Interacting]
     Active Substance: RISPERIDONE
     Indication: ANXIETY
     Dosage: 0.5 MG, 0.5-0.5-0.5MG
     Route: 065
  5. BROMAZANIL [Concomitant]
     Active Substance: BROMAZEPAM
     Indication: ANXIETY
     Dosage: 4.5 MG, UNK
     Route: 065
  6. RAMIPRIL. [Concomitant]
     Active Substance: RAMIPRIL
     Indication: PRODUCT USED FOR UNKNOWN INDICATION
     Dosage: 5 MG, UNK
     Route: 065
  7. LACTULOSE. [Concomitant]
     Active Substance: LACTULOSE
     Indication: PRODUCT USED FOR UNKNOWN INDICATION
     Dosage: 10 ML, UNK
     Route: 065
  8. LEVOTHYROXINE. [Concomitant]
     Active Substance: LEVOTHYROXINE
     Indication: PRODUCT USED FOR UNKNOWN INDICATION
     Dosage: 75 UG, UNK
     Route: 065
  9. BROMAZANIL [Concomitant]
     Active Substance: BROMAZEPAM
     Indication: IRRITABILITY
     Dosage: 6 MG, UNK
     Route: 065
  10. BUSPIRONE [Suspect]
     Active Substance: BUSPIRONE HYDROCHLORIDE
     Indication: PSYCHOTIC DISORDER
     Dosage: 5 MG, UNK
     Route: 065

REACTIONS (11)
  - Body temperature decreased [Recovering/Resolving]
  - Body temperature increased [Recovering/Resolving]
  - Drug interaction [Unknown]
  - Somnolence [Recovering/Resolving]
  - Hypothermia [Recovered/Resolved]
  - Autonomic nervous system imbalance [Recovered/Resolved]
  - Feeling cold [Recovered/Resolved]
  - Hypertonia [Recovering/Resolving]
  - Hypervigilance [Recovered/Resolved]
  - Disturbance in attention [Recovering/Resolving]
  - C-reactive protein increased [Recovering/Resolving]
